FAERS Safety Report 16867312 (Version 1)
Quarter: 2019Q4

REPORT INFORMATION
  Report Type: Spontaneous
  Country: US (occurrence: US)
  Receive Date: 20190929
  Receipt Date: 20190929
  Transmission Date: 20200122
  Serious: No
  Sender: FDA-Public Use
  Company Number: None

PATIENT
  Age: 36 Year
  Sex: Female
  Weight: 103.5 kg

DRUGS (1)
  1. MESTINON [Suspect]
     Active Substance: PYRIDOSTIGMINE BROMIDE
     Indication: MYASTHENIA GRAVIS
     Dates: start: 20190929

REACTIONS (8)
  - Drug ineffective [None]
  - Asthenia [None]
  - Ligament sprain [None]
  - Fatigue [None]
  - Thrombosis [None]
  - Pain [None]
  - Hypokinesia [None]
  - Staphylococcal infection [None]

NARRATIVE: CASE EVENT DATE: 20150315
